FAERS Safety Report 25528257 (Version 1)
Quarter: 2025Q3

REPORT INFORMATION
  Report Type: Spontaneous
  Country: JP (occurrence: JP)
  Receive Date: 20250708
  Receipt Date: 20250708
  Transmission Date: 20251021
  Serious: Yes (Hospitalization, Other)
  Sender: RANBAXY
  Company Number: JP-SUNPHARMA-2025R1-513946AA

PATIENT
  Sex: Male

DRUGS (1)
  1. TIZANIDINE [Suspect]
     Active Substance: TIZANIDINE
     Indication: Product used for unknown indication
     Route: 048

REACTIONS (3)
  - Cerebral infarction [Unknown]
  - Fall [Unknown]
  - Dizziness [Unknown]
